FAERS Safety Report 9431284 (Version 3)
Quarter: 2013Q3

REPORT INFORMATION
  Report Type: Report from Study
  Country: FR (occurrence: FR)
  Receive Date: 20130730
  Receipt Date: 20130813
  Transmission Date: 20140515
  Serious: Yes (Life-Threatening, Hospitalization)
  Sender: FDA-Public Use
  Company Number: FR-ROCHE-1225134

PATIENT
  Age: 70 Year
  Sex: Female
  Weight: 80 kg

DRUGS (7)
  1. TRASTUZUMAB EMTANSINE [Suspect]
     Indication: BREAST CANCER
     Dosage: DATE OF LAST DOSE PRIOR TO SAE 19/APR/2013
     Route: 042
     Dates: start: 20130327, end: 20130513
  2. RIVAROXABAN [Suspect]
     Indication: PROPHYLAXIS
     Route: 065
     Dates: start: 20130409, end: 20130507
  3. LEVOTHYROX [Concomitant]
     Route: 065
  4. VENTOLIN [Concomitant]
  5. SOLUPRED (FRANCE) [Concomitant]
     Indication: ASTHMA
     Route: 065
     Dates: start: 2011
  6. OMEPRAZOLE [Concomitant]
     Route: 065
  7. DIFFU K [Concomitant]
     Dosage: 2 CAPS
     Route: 065
     Dates: start: 201210

REACTIONS (2)
  - Interstitial lung disease [Recovered/Resolved]
  - Pulmonary embolism [Recovered/Resolved]
